FAERS Safety Report 8986725 (Version 1)
Quarter: 2012Q4

REPORT INFORMATION
  Report Type: Report from Study
  Country: IT (occurrence: IT)
  Receive Date: 20121226
  Receipt Date: 20121226
  Transmission Date: 20130627
  Serious: Yes (Hospitalization)
  Sender: FDA-Public Use
  Company Number: IT-ROCHE-786293

PATIENT
  Age: 61 Year

DRUGS (5)
  1. BEVACIZUMAB [Suspect]
     Indication: BREAST CANCER
     Route: 042
     Dates: start: 20090730, end: 20090914
  2. BISOPROLOL [Concomitant]
     Dosage: DOSE: 1.25
     Route: 048
  3. LANOXIN [Concomitant]
     Dosage: DOSE: 0.125
     Route: 048
  4. TRIATEC [Concomitant]
     Dosage: DOSE: 2.5
     Route: 048
  5. LASIX [Concomitant]
     Dosage: DOSE: 1/2 DF
     Route: 048

REACTIONS (2)
  - Left ventricular dysfunction [Recovering/Resolving]
  - Pleural effusion [Recovering/Resolving]
